FAERS Safety Report 4464830-2 (Version None)
Quarter: 2004Q4

REPORT INFORMATION
  Report Type: 
  Country: None (occurrence: None)
  Receive Date: 20041004
  Receipt Date: 20031017
  Transmission Date: 20050328
  Serious: No
  Sender: FDA-Public Use
  Company Number: 352012

PATIENT
  Age: 75 Year
  Sex: Male

DRUGS (6)
  1. COREG [Suspect]
     Dosage: 12.5MG TWICE PER DAY
     Route: 048
     Dates: start: 20030722
  2. HYDROCHLOROTHIAZIDE [Concomitant]
  3. ZOCOR [Concomitant]
  4. SYNTHROID [Concomitant]
  5. ACCUPRIL [Concomitant]
  6. COUMADIN [Concomitant]

REACTIONS (3)
  - CHAPPED LIPS [None]
  - ORAL MUCOSAL DISORDER [None]
  - STOMATITIS [None]
